FAERS Safety Report 9855083 (Version 3)
Quarter: 2014Q1

REPORT INFORMATION
  Report Type: Spontaneous
  Country: US (occurrence: US)
  Receive Date: 20140130
  Receipt Date: 20140320
  Transmission Date: 20141002
  Serious: No
  Sender: FDA-Public Use
  Company Number: US-PFIZER INC-2014024555

PATIENT
  Age: 53 Year
  Sex: Female
  Weight: 54.42 kg

DRUGS (3)
  1. ADVIL [Suspect]
     Indication: PAIN
     Dosage: 200 MG, FIVE TIMES A DAY
  2. TRAMADOL [Concomitant]
     Indication: PAIN
     Dosage: 50 MG, FOUR TIMES A DAY
  3. AVINZA [Concomitant]
     Indication: PAIN
     Dosage: 60 MG, TWO TIMES A DAY

REACTIONS (3)
  - Poor quality drug administered [Unknown]
  - Dysgeusia [Unknown]
  - Product physical issue [Unknown]
